FAERS Safety Report 4687145-6 (Version None)
Quarter: 2005Q2

REPORT INFORMATION
  Report Type: 
  Country: None (occurrence: None)
  Receive Date: 20050608
  Receipt Date: 20050525
  Transmission Date: 20051028
  Serious: Yes (Other)
  Sender: FDA-Public Use
  Company Number: 2005079681

PATIENT
  Sex: Female
  Weight: 42.6381 kg

DRUGS (3)
  1. CELEBREX [Suspect]
     Indication: ARTHRALGIA
     Dosage: 1 IN 1 D), ORAL
     Route: 048
  2. VIOXX (REFECOXIB) [Suspect]
     Indication: ARTHRALGIA
     Dosage: ORAL
     Route: 048
  3. CALCIUM (CALCIUM) [Concomitant]

REACTIONS (5)
  - BACTERIAL INFECTION [None]
  - DRUG INEFFECTIVE [None]
  - GASTRIC INFECTION [None]
  - JOINT ARTHROPLASTY [None]
  - OSTEOPOROSIS [None]
